FAERS Safety Report 7170741-4 (Version None)
Quarter: 2010Q4

REPORT INFORMATION
  Report Type: 
  Country: None (occurrence: None)
  Receive Date: 20101217
  Receipt Date: 20101208
  Transmission Date: 20110411
  Serious: Yes (Other)
  Sender: FDA-Public Use
  Company Number: GB-JNJFOC-20101203800

PATIENT
  Sex: Male

DRUGS (2)
  1. INFLIXIMAB, RECOMBINANT [Suspect]
     Indication: COLITIS
     Dosage: 3-4 YEARS
     Route: 042
  2. INFLIXIMAB, RECOMBINANT [Suspect]
     Indication: ANKYLOSING SPONDYLITIS
     Dosage: 3-4 YEARS
     Route: 042

REACTIONS (4)
  - C-REACTIVE PROTEIN INCREASED [None]
  - CHILLS [None]
  - LUNG INFILTRATION [None]
  - VOMITING [None]
